FAERS Safety Report 4752110-7 (Version None)
Quarter: 2005Q3

REPORT INFORMATION
  Report Type: 
  Country: None (occurrence: None)
  Receive Date: 20050825
  Receipt Date: 20050816
  Transmission Date: 20060218
  Serious: Yes (Hospitalization)
  Sender: FDA-Public Use
  Company Number: US-BRISTOL-MYERS SQUIBB COMPANY-13082359

PATIENT
  Age: 77 Year
  Sex: Male
  Weight: 113 kg

DRUGS (1)
  1. COUMADIN [Suspect]
     Indication: ATRIAL FIBRILLATION
     Dosage: 5 MG TWICE A WEEK AND 2.5 MG ON THE REMAINING DAYS (DAYS OF THE WEEK NOT PROVIDED)

REACTIONS (4)
  - DEHYDRATION [None]
  - ECCHYMOSIS [None]
  - HYPOTENSION [None]
  - INTERNATIONAL NORMALISED RATIO DECREASED [None]
